FAERS Safety Report 25261951 (Version 1)
Quarter: 2025Q2

REPORT INFORMATION
  Report Type: Spontaneous
  Country: US (occurrence: US)
  Receive Date: 20250502
  Receipt Date: 20250502
  Transmission Date: 20250716
  Serious: No
  Sender: BIOGEN
  Company Number: US-BIOGEN-2025BI01308785

PATIENT
  Age: 42 Year
  Sex: Female

DRUGS (1)
  1. ZURZUVAE [Suspect]
     Active Substance: ZURANOLONE
     Indication: Perinatal depression
     Route: 050
     Dates: start: 20250416

REACTIONS (8)
  - Product storage error [Unknown]
  - Back pain [Unknown]
  - Feeling abnormal [Unknown]
  - Muscle twitching [Unknown]
  - Myalgia [Unknown]
  - Dizziness [Unknown]
  - Somnolence [Unknown]
  - Gait disturbance [Unknown]

NARRATIVE: CASE EVENT DATE: 20250419
